FAERS Safety Report 5385583-X (Version None)
Quarter: 2007Q3

REPORT INFORMATION
  Report Type: 
  Country: None (occurrence: None)
  Receive Date: 20070712
  Receipt Date: 20070702
  Transmission Date: 20080115
  Serious: Yes (Other)
  Sender: FDA-Public Use
  Company Number: AU-JNJFOC-20070201689

PATIENT
  Age: 53 Year
  Sex: Female

DRUGS (2)
  1. REMICADE [Suspect]
     Indication: ANKYLOSING SPONDYLITIS
     Dosage: REACTION OCCURRED BETWEEN THE 7TH AND 10TH INFUSION
     Route: 042
  2. MOBIC [Concomitant]
     Route: 048

REACTIONS (1)
  - MENIERE'S DISEASE [None]
